FAERS Safety Report 6125100-X (Version None)
Quarter: 2009Q1

REPORT INFORMATION
  Report Type: 
  Country: None (occurrence: None)
  Receive Date: 20090319
  Receipt Date: 20090311
  Transmission Date: 20090719
  Serious: Yes (Hospitalization, Disabling)
  Sender: FDA-Public Use
  Company Number: JP-GENENTECH-203642

PATIENT
  Sex: Male

DRUGS (9)
  1. RITUXAN [Suspect]
     Indication: DIFFUSE LARGE B-CELL LYMPHOMA
     Dosage: 650 MG, 1/WEEK
     Route: 042
     Dates: start: 20020718, end: 20020808
  2. METHYLPREDNISOLONE 4MG TAB [Suspect]
     Indication: INTERSTITIAL LUNG DISEASE
     Dosage: 1000 MG, UNK
     Route: 042
     Dates: start: 20021118, end: 20021118
  3. METHYLPREDNISOLONE 4MG TAB [Suspect]
     Dosage: 500 MG, UNK
     Dates: start: 20021121, end: 20021121
  4. METHYLPREDNISOLONE 4MG TAB [Suspect]
     Dosage: 250 MG, UNK
     Dates: start: 20021123, end: 20021123
  5. METHYLPREDNISOLONE 4MG TAB [Suspect]
     Dosage: 125 MG, UNK
     Dates: start: 20021126, end: 20021126
  6. HYDROCORTISONE [Concomitant]
     Dates: start: 20020718, end: 20020718
  7. CHLORPHENTERMINE 65MG TAB [Concomitant]
     Indication: PREMEDICATION
     Dates: start: 20020718, end: 20020808
  8. ACETAMINOPHEN [Concomitant]
     Indication: PREMEDICATION
     Dates: start: 20020718, end: 20020718
  9. IBUPROFEN TABLETS [Concomitant]
     Indication: PREMEDICATION
     Dosage: UNK, UNK
     Dates: start: 20020725, end: 20020808

REACTIONS (1)
  - NECROTISING RETINITIS [None]
